FAERS Safety Report 14289563 (Version 1)
Quarter: 2017Q4

REPORT INFORMATION
  Report Type: Spontaneous
  Country: US (occurrence: US)
  Receive Date: 20171215
  Receipt Date: 20171215
  Transmission Date: 20180321
  Serious: No
  Sender: FDA-Public Use
  Company Number: US-BAYER-2017-240403

PATIENT
  Age: 32 Year
  Sex: Female
  Weight: 75 kg

DRUGS (1)
  1. MIRALAX [Suspect]
     Active Substance: POLYETHYLENE GLYCOL 3350
     Indication: GASTROINTESTINAL DISORDER
     Dosage: 1 DF, UNK
     Route: 048
     Dates: start: 2015

REACTIONS (5)
  - Incorrect drug administration duration [Unknown]
  - Drug ineffective [Unknown]
  - Poor quality drug administered [None]
  - Product taste abnormal [None]
  - Flatulence [Unknown]

NARRATIVE: CASE EVENT DATE: 2015
